FAERS Safety Report 5743323-6 (Version None)
Quarter: 2008Q2

REPORT INFORMATION
  Report Type: 
  Country: None (occurrence: None)
  Receive Date: 20080519
  Receipt Date: 20080510
  Transmission Date: 20081010
  Serious: Yes (Other)
  Sender: FDA-Public Use
  Company Number: US-PFIZER INC-2008040556

PATIENT
  Sex: Female
  Weight: 92.272 kg

DRUGS (37)
  1. LIPITOR [Suspect]
     Indication: BLOOD TRIGLYCERIDES INCREASED
     Route: 048
  2. INDAPAMIDE [Concomitant]
  3. PROTONIX [Concomitant]
  4. PROTONIX [Concomitant]
  5. PREMARIN [Concomitant]
  6. PREMARIN [Concomitant]
  7. CENTRUM SILVER [Concomitant]
  8. CENTRUM SILVER [Concomitant]
  9. PLAVIX [Concomitant]
  10. PLAVIX [Concomitant]
  11. MAGNESIUM [Concomitant]
  12. MAGNESIUM [Concomitant]
  13. ALL OTHER THERAPEUTIC PRODUCTS [Concomitant]
  14. ALL OTHER THERAPEUTIC PRODUCTS [Concomitant]
  15. ALL OTHER THERAPEUTIC PRODUCTS [Concomitant]
  16. ALL OTHER THERAPEUTIC PRODUCTS [Concomitant]
  17. OMEGA 3 [Concomitant]
  18. OMEGA 3 [Concomitant]
  19. GEMFIBROZIL [Concomitant]
  20. GEMFIBROZIL [Concomitant]
  21. METOPROLOL TARTRATE [Concomitant]
  22. METOPROLOL TARTRATE [Concomitant]
  23. ASPIRIN 10GR TIMED DISINTEGRATION TAB [Concomitant]
  24. ASPIRIN 10GR TIMED DISINTEGRATION TAB [Concomitant]
  25. AVELOX [Concomitant]
  26. AVELOX [Concomitant]
  27. ALL OTHER THERAPEUTIC PRODUCTS [Concomitant]
  28. ALL OTHER THERAPEUTIC PRODUCTS [Concomitant]
  29. ANTIOXIDANTS [Concomitant]
  30. ANTIOXIDANTS [Concomitant]
  31. VITAMINS [Concomitant]
  32. VITAMINS [Concomitant]
  33. SYMBICORT [Concomitant]
  34. SYMBICORT [Concomitant]
  35. PROVENTIL TABLET [Concomitant]
  36. PROVENTIL TABLET [Concomitant]
  37. CATAPRES-TTS-1 [Concomitant]

REACTIONS (7)
  - ASTHMA [None]
  - BEDRIDDEN [None]
  - BRONCHITIS [None]
  - DEHYDRATION [None]
  - OEDEMA PERIPHERAL [None]
  - PNEUMONIA [None]
  - SWELLING [None]
